FAERS Safety Report 10199484 (Version 1)
Quarter: 2014Q2

REPORT INFORMATION
  Report Type: Spontaneous
  Country: US (occurrence: US)
  Receive Date: 20140527
  Receipt Date: 20140527
  Transmission Date: 20141212
  Serious: Yes (Death)
  Sender: FDA-Public Use
  Company Number: US-PFIZER INC-2014142763

PATIENT
  Age: 82 Year
  Sex: Female
  Weight: 63.49 kg

DRUGS (1)
  1. REVATIO [Suspect]
     Indication: DYSPNOEA
     Dosage: 20 MG, 3X/DAY

REACTIONS (1)
  - Dyspnoea [Fatal]
